FAERS Safety Report 4647852-8 (Version None)
Quarter: 2005Q2

REPORT INFORMATION
  Report Type: 
  Country: None (occurrence: None)
  Receive Date: 20050428
  Receipt Date: 20050421
  Transmission Date: 20051028
  Serious: Yes (Hospitalization)
  Sender: FDA-Public Use
  Company Number: GB-GLAXOSMITHKLINE-B0378827A

PATIENT
  Age: 53 Year
  Sex: Female

DRUGS (8)
  1. DIGOXIN [Suspect]
     Indication: ATRIAL FIBRILLATION
     Dosage: 187.5MCG PER DAY
     Route: 048
     Dates: start: 20041201, end: 20050101
  2. HYDROXYCHLOROQUINE SULFATE [Suspect]
     Indication: ARTHRITIS
     Dosage: 200MG PER DAY
     Route: 048
  3. LANSOPRAZOLE [Concomitant]
     Dosage: 30MG PER DAY
     Route: 065
  4. PREDNISOLONE [Concomitant]
     Dosage: 20MG PER DAY
     Route: 065
  5. FRUSEMIDE [Concomitant]
     Dosage: 80MG PER DAY
     Route: 065
  6. RAMIPRIL [Concomitant]
     Dosage: 10MG PER DAY
     Route: 065
  7. ASPIRIN [Concomitant]
     Dosage: 75MG PER DAY
     Route: 065
  8. SERETIDE [Concomitant]
     Indication: ASTHMA
     Route: 055

REACTIONS (4)
  - DRUG INTERACTION [None]
  - RENAL FAILURE ACUTE [None]
  - THERAPEUTIC AGENT TOXICITY [None]
  - VOMITING [None]
